FAERS Safety Report 11254595 (Version 1)
Quarter: 2015Q3

REPORT INFORMATION
  Report Type: Spontaneous
  Country: US (occurrence: None)
  Receive Date: 20150708
  Receipt Date: 20150708
  Transmission Date: 20151125
  Serious: Yes (Life-Threatening)
  Sender: FDA-Public Use
  Company Number: None

PATIENT
  Age: 40 Year
  Sex: Female
  Weight: 83.92 kg

DRUGS (1)
  1. MORPHINE [Suspect]
     Active Substance: MORPHINE
     Indication: ADNEXA UTERI PAIN
     Dosage: INTO A VEIN
     Route: 042
     Dates: start: 20150707

REACTIONS (10)
  - Chest discomfort [None]
  - Dyspnoea [None]
  - Feeling abnormal [None]
  - Paraesthesia [None]
  - Chest pain [None]
  - Disturbance in attention [None]
  - Pain [None]
  - Hallucination, visual [None]
  - Gastrointestinal sounds abnormal [None]
  - Product quality issue [None]

NARRATIVE: CASE EVENT DATE: 20150706
